FAERS Safety Report 5053941-9 (Version None)
Quarter: 2006Q2

REPORT INFORMATION
  Report Type: 
  Country: None (occurrence: None)
  Receive Date: 20060614
  Receipt Date: 20060330
  Transmission Date: 20061013
  Serious: Yes (Other)
  Sender: FDA-Public Use
  Company Number: 442653

PATIENT
  Sex: Female

DRUGS (8)
  1. BONIVA [Suspect]
     Indication: DRUG USE FOR UNKNOWN INDICATION
     Dates: start: 20050615
  2. ENALAPRIL MALEATE [Concomitant]
  3. TOPRAL (SULTOPRIDE) [Concomitant]
  4. PLAVIX [Concomitant]
  5. TRICOR [Concomitant]
  6. HYDROCHLOROTHIAZIDE [Concomitant]
  7. NIASPAN [Concomitant]
  8. ASPIRIN [Concomitant]

REACTIONS (1)
  - DYSPNOEA [None]
